FAERS Safety Report 6661054-5 (Version None)
Quarter: 2010Q1

REPORT INFORMATION
  Report Type: 
  Country: None (occurrence: None)
  Receive Date: 20100331
  Receipt Date: 20100322
  Transmission Date: 20100710
  Serious: Yes (Death)
  Sender: FDA-Public Use
  Company Number: IT-ROCHE-687639

PATIENT
  Sex: Female

DRUGS (1)
  1. BEVACIZUMAB [Suspect]
     Indication: OVARIAN CANCER
     Dosage: FREQUENCY- CYCLE
     Route: 042
     Dates: start: 20091204, end: 20100113

REACTIONS (2)
  - BRAIN OEDEMA [None]
  - DISEASE PROGRESSION [None]
